FAERS Safety Report 9341477 (Version 1)
Quarter: 2013Q2

REPORT INFORMATION
  Report Type: Spontaneous
  Country: US (occurrence: US)
  Receive Date: 20130611
  Receipt Date: 20130611
  Transmission Date: 20140414
  Serious: Yes (Hospitalization)
  Sender: FDA-Public Use
  Company Number: US-JNJFOC-20130522281

PATIENT
  Age: 24 Year
  Sex: Female
  Weight: 38 kg

DRUGS (1)
  1. UNSPECIFIED FENTANYL TRANSDERMAL SYSTEM [Suspect]
     Indication: PAIN
     Route: 062

REACTIONS (4)
  - Abscess [Unknown]
  - Hospitalisation [Unknown]
  - Pain [Unknown]
  - Product quality issue [Not Recovered/Not Resolved]
